FAERS Safety Report 21272148 (Version 2)
Quarter: 2022Q4

REPORT INFORMATION
  Report Type: Spontaneous
  Country: JP (occurrence: JP)
  Receive Date: 20220830
  Receipt Date: 20221010
  Transmission Date: 20230112
  Serious: Yes (Other)
  Sender: FDA-Public Use
  Company Number: JP-TERUMO-EVS202200108MALLINCKRODT

PATIENT
  Age: 60 Year
  Sex: Male
  Weight: 63 kg

DRUGS (2)
  1. OFIRMEV [Suspect]
     Active Substance: ACETAMINOPHEN
     Indication: Procedural pain
     Dosage: 1000 MILLIGRAM (1 BAG)
     Route: 042
     Dates: start: 20200414, end: 20200414
  2. CEFAZOLIN SODIUM [Suspect]
     Active Substance: CEFAZOLIN SODIUM
     Indication: Product used for unknown indication
     Dosage: UNK
     Route: 065

REACTIONS (1)
  - Kounis syndrome [Recovered/Resolved]

NARRATIVE: CASE EVENT DATE: 20200414
